FAERS Safety Report 4870419-3 (Version None)
Quarter: 2006Q1

REPORT INFORMATION
  Report Type: 
  Country: None (occurrence: None)
  Receive Date: 20060103
  Receipt Date: 20050103
  Transmission Date: 20060701
  Serious: No
  Sender: FDA-Public Use
  Company Number: US-BRISTOL-MYERS SQUIBB COMPANY-12811055

PATIENT
  Age: 38 Year
  Sex: Female
  Weight: 79 kg

DRUGS (2)
  1. TRAZODONE HCL [Suspect]
     Indication: SLEEP DISORDER
     Route: 048
     Dates: start: 20030701
  2. TAMOXIFEN [Concomitant]

REACTIONS (2)
  - ALOPECIA [None]
  - INSOMNIA [None]
